FAERS Safety Report 4509094-6 (Version None)
Quarter: 2004Q4

REPORT INFORMATION
  Report Type: 
  Country: None (occurrence: None)
  Receive Date: 20041025
  Receipt Date: 20040330
  Transmission Date: 20050328
  Serious: Yes (Other)
  Sender: FDA-Public Use
  Company Number: US-JNJFOC-20040201724

PATIENT
  Age: 39 Year
  Sex: Female
  Weight: 50.8029 kg

DRUGS (3)
  1. REMICADE [Suspect]
     Indication: PSORIASIS
     Dosage: INTRAVENOUS
     Route: 042
     Dates: start: 20031001
  2. REMICADE [Suspect]
     Indication: PSORIATIC ARTHROPATHY
     Dosage: INTRAVENOUS
     Route: 042
     Dates: start: 20031001
  3. ANTIHISTAMINES (ANTIHISTAMINES) [Concomitant]

REACTIONS (5)
  - LIVER FUNCTION TEST ABNORMAL [None]
  - PYREXIA [None]
  - SINUSITIS [None]
  - SYSTEMIC LUPUS ERYTHEMATOSUS [None]
  - VIRAL INFECTION [None]
